FAERS Safety Report 17211285 (Version 1)
Quarter: 2019Q4

REPORT INFORMATION
  Report Type: Spontaneous
  Country: DE (occurrence: DE)
  Receive Date: 20191228
  Receipt Date: 20191228
  Transmission Date: 20200122
  Serious: Yes (Disabling)
  Sender: FDA-Public Use
  Company Number: DE-DRREDDYS-GER/GER/19/0117596

PATIENT
  Age: 42 Year
  Sex: Female
  Weight: 70 kg

DRUGS (6)
  1. RISPERIDON [Suspect]
     Active Substance: RISPERIDONE
     Indication: MANIA
  2. OLANZAPINE. [Suspect]
     Active Substance: OLANZAPINE
     Indication: MANIA
  3. RISPERIDON [Suspect]
     Active Substance: RISPERIDONE
     Indication: SCHIZOAFFECTIVE DISORDER
  4. OLANZAPINE. [Suspect]
     Active Substance: OLANZAPINE
     Indication: SCHIZOAFFECTIVE DISORDER
  5. RISPERIDON [Suspect]
     Active Substance: RISPERIDONE
     Indication: PERSECUTORY DELUSION
     Dosage: 4MG
     Dates: start: 20181001, end: 20190802
  6. OLANZAPINE. [Suspect]
     Active Substance: OLANZAPINE
     Indication: PERSECUTORY DELUSION
     Dosage: 15MG
     Route: 048
     Dates: start: 20181101, end: 20190802

REACTIONS (2)
  - Loss of personal independence in daily activities [Unknown]
  - Dyskinesia [Recovered/Resolved with Sequelae]

NARRATIVE: CASE EVENT DATE: 20190703
